FAERS Safety Report 6821316-5 (Version None)
Quarter: 2010Q3

REPORT INFORMATION
  Report Type: 
  Country: None (occurrence: None)
  Receive Date: 20100707
  Receipt Date: 20080729
  Transmission Date: 20110219
  Serious: No
  Sender: FDA-Public Use
  Company Number: US-PFIZER INC-2008063265

PATIENT
  Sex: Female
  Weight: 90.9 kg

DRUGS (2)
  1. ZOLOFT [Suspect]
     Indication: DEPRESSION
     Dates: start: 20000101
  2. BUSPAR [Concomitant]

REACTIONS (1)
  - WEIGHT INCREASED [None]
